FAERS Safety Report 9581967 (Version 1)
Quarter: 2013Q4

REPORT INFORMATION
  Report Type: Spontaneous
  Country: US (occurrence: US)
  Receive Date: 20131002
  Receipt Date: 20131002
  Transmission Date: 20140711
  Serious: Yes (Other)
  Sender: FDA-Public Use
  Company Number: US-VERTEX PHARMACEUTICALS INC-2013-010036

PATIENT
  Age: 56 Year
  Sex: Female

DRUGS (8)
  1. INCIVEK [Suspect]
     Indication: HEPATITIS C
     Dosage: 2250 MG, QD
  2. RIBAVIRIN [Suspect]
     Indication: HEPATITIS C
     Dosage: 1200 MG, QD
  3. PEGYLATED INTERFERON ALFA-2A [Suspect]
     Indication: HEPATITIS C
     Dosage: 180 ?G, QW
     Route: 058
  4. MULTIVITAMIN [Concomitant]
     Dosage: UNK, QD
  5. IRON [Concomitant]
  6. VITA VITAMIN E [Concomitant]
  7. CITALOPRAM [Concomitant]
     Indication: INSOMNIA
     Dosage: 20 MG, UNK
  8. AMITRIPTYLINE [Concomitant]
     Indication: INSOMNIA
     Dosage: 10 MG, UNK

REACTIONS (5)
  - Pancytopenia [Recovered/Resolved]
  - Suicidal ideation [Recovered/Resolved]
  - Depression [Recovered/Resolved]
  - Scleritis [Recovered/Resolved]
  - Fatigue [Not Recovered/Not Resolved]
